FAERS Safety Report 9209607 (Version 2)
Quarter: 2014Q1

REPORT INFORMATION
  Report Type: Spontaneous
  Country: US (occurrence: US)
  Receive Date: 20130404
  Receipt Date: 20140120
  Transmission Date: 20141002
  Serious: Yes (Other)
  Sender: FDA-Public Use
  Company Number: US-BAYER-2013-040166

PATIENT
  Age: 20 Year
  Sex: Female

DRUGS (4)
  1. YAZ [Suspect]
     Dosage: UNK
     Route: 048
     Dates: start: 2007, end: 2011
  2. YASMIN [Suspect]
     Dosage: UNK
     Route: 048
     Dates: start: 2007, end: 2011
  3. LOESTRIN [Concomitant]
  4. ACCUTANE [Concomitant]

REACTIONS (4)
  - Cholecystectomy [None]
  - Cholecystitis chronic [None]
  - Pain [None]
  - Injury [None]
